FAERS Safety Report 8920636 (Version 1)
Quarter: 2012Q4

REPORT INFORMATION
  Report Type: 
  Country: US (occurrence: US)
  Receive Date: 20121122
  Receipt Date: 20121122
  Transmission Date: 20130627
  Serious: No
  Sender: FDA-Public Use
  Company Number: US-009507513-1201USA01950

PATIENT
  Sex: Female

DRUGS (2)
  1. ZOCOR [Suspect]
     Route: 048
  2. THERAPY UNSPECIFIED [Suspect]
     Route: 048

REACTIONS (2)
  - Hepatic enzyme increased [Unknown]
  - Hepatic enzyme increased [Unknown]
